FAERS Safety Report 21344489 (Version 10)
Quarter: 2023Q1

REPORT INFORMATION
  Report Type: Spontaneous
  Country: US (occurrence: US)
  Receive Date: 20220916
  Receipt Date: 20230203
  Transmission Date: 20230418
  Serious: No
  Sender: FDA-Public Use
  Company Number: US-DSJP-DSU-2022-133276AA

PATIENT
  Sex: Female

DRUGS (3)
  1. ENHERTU [Suspect]
     Active Substance: FAM-TRASTUZUMAB DERUXTECAN-NXKI
     Indication: Breast cancer metastatic
     Dosage: UNK
     Route: 065
  2. ALOXI [Concomitant]
     Active Substance: PALONOSETRON HYDROCHLORIDE
     Indication: Premedication
     Dosage: UNK
     Route: 065
  3. PROCHLORPERAZINE MALEATE [Concomitant]
     Active Substance: PROCHLORPERAZINE MALEATE
     Indication: Premedication
     Dosage: UNK
     Route: 065

REACTIONS (14)
  - Product dose omission issue [Unknown]
  - Unevaluable event [Unknown]
  - Fatigue [Unknown]
  - Feeling abnormal [Unknown]
  - Constipation [Unknown]
  - Nausea [Recovered/Resolved with Sequelae]
  - Headache [Recovered/Resolved with Sequelae]
  - Vertigo [Unknown]
  - Dizziness [Unknown]
  - Adverse event [Unknown]
  - Alopecia [Unknown]
  - Madarosis [Unknown]
  - Stomatitis [Unknown]
  - Headache [Unknown]
